FAERS Safety Report 10340614 (Version 1)
Quarter: 2014Q3

REPORT INFORMATION
  Report Type: Spontaneous
  Country: US (occurrence: US)
  Receive Date: 20140724
  Receipt Date: 20140724
  Transmission Date: 20150326
  Serious: Yes (Other)
  Sender: FDA-Public Use
  Company Number: US-MYLANLABS-2014S1017677

PATIENT
  Age: 29 Year
  Sex: Female
  Weight: 79.38 kg

DRUGS (1)
  1. XULANE [Suspect]
     Active Substance: ETHINYL ESTRADIOL\NORELGESTROMIN
     Indication: CONTRACEPTION
     Dosage: 150UG/35UG - CHANGED QWEEK FOR 3 WEEKS, OFF FOR 1 WEEK AND THEN REPEAT.
     Route: 062
     Dates: start: 201405, end: 201406

REACTIONS (5)
  - Maternal exposure before pregnancy [Recovered/Resolved]
  - Exposure during pregnancy [None]
  - Drug ineffective [Recovered/Resolved]
  - Abortion spontaneous [Recovered/Resolved]
  - Pregnancy on contraceptive [Recovered/Resolved]

NARRATIVE: CASE EVENT DATE: 201405
